FAERS Safety Report 11672083 (Version 1)
Quarter: 2015Q4

REPORT INFORMATION
  Report Type: Spontaneous
  Country: US (occurrence: None)
  Receive Date: 20151026
  Receipt Date: 20151026
  Transmission Date: 20160304
  Serious: Yes (Other)
  Sender: FDA-Public Use
  Company Number: 2572709

PATIENT
  Sex: Male

DRUGS (1)
  1. AMIDATE [Suspect]
     Active Substance: ETOMIDATE
     Indication: CARDIO-RESPIRATORY ARREST
     Dates: start: 20141001

REACTIONS (2)
  - Needle issue [None]
  - Therapy cessation [None]

NARRATIVE: CASE EVENT DATE: 20141001
